FAERS Safety Report 19474235 (Version 1)
Quarter: 2021Q2

REPORT INFORMATION
  Report Type: Report from Study
  Country: None (occurrence: IE)
  Receive Date: 20210630
  Receipt Date: 20210630
  Transmission Date: 20210717
  Serious: Yes (Death, Hospitalization)
  Sender: FDA-Public Use
  Company Number: IE-ABBVIE-21K-229-3909608-00

PATIENT
  Age: 73 Year
  Sex: Male

DRUGS (8)
  1. QUETIAPINE. [Concomitant]
     Active Substance: QUETIAPINE
     Indication: PRODUCT USED FOR UNKNOWN INDICATION
     Route: 050
  2. STALEVO [Concomitant]
     Active Substance: CARBIDOPA\ENTACAPONE\LEVODOPA
     Indication: PRODUCT USED FOR UNKNOWN INDICATION
     Route: 050
  3. MIRAPEX [Concomitant]
     Active Substance: PRAMIPEXOLE DIHYDROCHLORIDE
     Indication: PRODUCT USED FOR UNKNOWN INDICATION
  4. DUODOPA [Suspect]
     Active Substance: CARBIDOPA\LEVODOPA
     Route: 050
  5. RIVOTRIL [Concomitant]
     Active Substance: CLONAZEPAM
     Indication: PRODUCT USED FOR UNKNOWN INDICATION
     Route: 050
  6. DUODOPA [Suspect]
     Active Substance: CARBIDOPA\LEVODOPA
     Indication: PARKINSON^S DISEASE
     Dosage: 2 CASSETTE, CONTINUOUS
     Route: 050
     Dates: start: 20180709
  7. AZILECT [Concomitant]
     Active Substance: RASAGILINE MESYLATE
     Indication: PRODUCT USED FOR UNKNOWN INDICATION
  8. SINEMET CR [Concomitant]
     Active Substance: CARBIDOPA\LEVODOPA
     Indication: PRODUCT USED FOR UNKNOWN INDICATION

REACTIONS (13)
  - Stoma site discharge [Unknown]
  - Device occlusion [Recovered/Resolved]
  - Stoma site erythema [Not Recovered/Not Resolved]
  - Malaise [Fatal]
  - Embedded device [Not Recovered/Not Resolved]
  - Device dislocation [Not Recovered/Not Resolved]
  - Stoma site haemorrhage [Recovered/Resolved]
  - Device connection issue [Recovered/Resolved]
  - Device occlusion [Not Recovered/Not Resolved]
  - Stoma site induration [Not Recovered/Not Resolved]
  - Stoma site pain [Recovered/Resolved]
  - Device occlusion [Recovered/Resolved]
  - Stoma site infection [Not Recovered/Not Resolved]

NARRATIVE: CASE EVENT DATE: 2021
